FAERS Safety Report 4583181-9 (Version None)
Quarter: 2005Q1

REPORT INFORMATION
  Report Type: 
  Country: None (occurrence: None)
  Receive Date: 20050125
  Receipt Date: 20041102
  Transmission Date: 20050727
  Serious: No
  Sender: FDA-Public Use
  Company Number: US_0406103645

PATIENT
  Age: 80 Year
  Sex: Female

DRUGS (5)
  1. EVISTA [Suspect]
     Dosage: 60 MG DAY
     Dates: start: 20030301
  2. FORTEO [Suspect]
     Indication: OSTEOPOROSIS
     Dates: start: 20040711
  3. ASPIRIN [Concomitant]
  4. VITAMINS [Concomitant]
  5. TUMS (CALCIUM CARBONATE) [Concomitant]

REACTIONS (8)
  - ARTHRALGIA [None]
  - ERYTHEMA [None]
  - HOT FLUSH [None]
  - INJECTION SITE HAEMORRHAGE [None]
  - NERVOUSNESS [None]
  - PAIN IN EXTREMITY [None]
  - RASH [None]
  - SPINAL FRACTURE [None]
